FAERS Safety Report 16771922 (Version 1)
Quarter: 2019Q3

REPORT INFORMATION
  Report Type: Other
  Country: JP (occurrence: JP)
  Receive Date: 20190904
  Receipt Date: 20190904
  Transmission Date: 20191005
  Serious: Yes (Hospitalization)
  Sender: FDA-Public Use
  Company Number: JP-EMD SERONO-9099902

PATIENT
  Age: 31 Year
  Sex: Female

DRUGS (3)
  1. HUMAN CHORIONIC GONADOTROPIN [Concomitant]
     Active Substance: GONADOTROPHIN, CHORIONIC
     Indication: OVULATION INDUCTION
  2. GONAL-F [Suspect]
     Active Substance: FOLLITROPIN
     Indication: OVULATION INDUCTION
     Route: 058
  3. FOLLISTIM [Suspect]
     Active Substance: FOLLITROPIN
     Indication: OVULATION INDUCTION

REACTIONS (3)
  - Ovarian hyperstimulation syndrome [Recovered/Resolved]
  - Heterotopic pregnancy [Recovered/Resolved]
  - Intra-abdominal haemorrhage [Recovered/Resolved]
